FAERS Safety Report 22594399 (Version 1)
Quarter: 2023Q2

REPORT INFORMATION
  Report Type: Report from Study
  Country: US (occurrence: US)
  Receive Date: 20230613
  Receipt Date: 20230613
  Transmission Date: 20230722
  Serious: Yes (Death)
  Sender: FDA-Public Use
  Company Number: US-MYLANLABS-2023M1062254

PATIENT

DRUGS (6)
  1. OXALIPLATIN [Suspect]
     Active Substance: OXALIPLATIN
     Indication: Oesophageal adenocarcinoma
     Dosage: 85 MILLIGRAM/SQ. METER, BIWEEKLY
     Route: 042
  2. FLUOROURACIL [Suspect]
     Active Substance: FLUOROURACIL
     Indication: Oesophageal adenocarcinoma
     Dosage: 400 MILLIGRAM/SQ. METER, BIWEEKLY,...OVER APPROXIMATELY 46H INTRAVENOUSLY EVERY 2 WEEKS, BOLUS
     Route: 042
  3. FLUOROURACIL [Suspect]
     Active Substance: FLUOROURACIL
     Dosage: 2400 MILLIGRAM/SQ. METER, BIWEEKLY, ...OVER APPROXIMATELY 46H INTRAVENOUSLY EVERY 2 WEEKS
     Route: 042
  4. LEUCOVORIN CALCIUM [Suspect]
     Active Substance: LEUCOVORIN CALCIUM
     Indication: Oesophageal adenocarcinoma
     Dosage: 400 MILLIGRAM/SQ. METER, BIWEEKLY
     Route: 042
  5. BEMARITUZUMAB [Suspect]
     Active Substance: BEMARITUZUMAB
     Indication: Oesophageal adenocarcinoma
     Dosage: 15 MILLIGRAM/KILOGRAM, BIWEEKLY
     Route: 042
  6. BEMARITUZUMAB [Suspect]
     Active Substance: BEMARITUZUMAB
     Dosage: 7.5 MILLIGRAM/KILOGRAM, BIWEEKLY, ON DAY 8 OF THE FIRST CYCLE
     Route: 042

REACTIONS (1)
  - Pneumonia [Fatal]
